FAERS Safety Report 14797942 (Version 1)
Quarter: 2018Q2

REPORT INFORMATION
  Report Type: Spontaneous
  Country: US (occurrence: US)
  Receive Date: 20180424
  Receipt Date: 20180424
  Transmission Date: 20180711
  Serious: No
  Sender: FDA-Public Use
  Company Number: US-ASTRAZENECA-2018SE39908

PATIENT
  Sex: Male

DRUGS (1)
  1. SYMBICORT [Suspect]
     Active Substance: BUDESONIDE\FORMOTEROL FUMARATE DIHYDRATE
     Indication: ASTHMA
     Dosage: 160/4.5 MCG TWO INHALATIONS TWICE A DAY
     Route: 055

REACTIONS (9)
  - Visual acuity reduced [Unknown]
  - Muscular weakness [Unknown]
  - Drug dose omission [Unknown]
  - Intentional product misuse [Unknown]
  - Asthma [Unknown]
  - Glaucoma [Unknown]
  - Device defective [Unknown]
  - Macular hole [Unknown]
  - Circumstance or information capable of leading to medication error [Unknown]
